FAERS Safety Report 5039434-3 (Version None)
Quarter: 2006Q2

REPORT INFORMATION
  Report Type: 
  Country: None (occurrence: None)
  Receive Date: 20060623
  Receipt Date: 20060612
  Transmission Date: 20061013
  Serious: Yes (Hospitalization, Other)
  Sender: FDA-Public Use
  Company Number: 2006075547

PATIENT
  Age: 42 Year
  Sex: Male

DRUGS (2)
  1. CELEBREX [Suspect]
     Indication: ARTHRITIS
     Dosage: 400 MG (200 MG, 2 IN 1 D)
     Dates: start: 20010101
  2. CELEBREX [Suspect]
     Indication: INJURY
     Dosage: 400 MG (200 MG, 2 IN 1 D)
     Dates: start: 20010101

REACTIONS (5)
  - BALANCE DISORDER [None]
  - CEREBROVASCULAR ACCIDENT [None]
  - DYSARTHRIA [None]
  - HEPATIC STEATOSIS [None]
  - VISUAL ACUITY REDUCED [None]
